FAERS Safety Report 4693789-8 (Version None)
Quarter: 2005Q2

REPORT INFORMATION
  Report Type: 
  Country: None (occurrence: None)
  Receive Date: 20050616
  Receipt Date: 20050531
  Transmission Date: 20051028
  Serious: Yes (Hospitalization, Disabling, Other)
  Sender: FDA-Public Use
  Company Number: 2004BL005837

PATIENT
  Age: 72 Year
  Sex: Female
  Weight: 65 kg

DRUGS (2)
  1. TIMOLOL MALEATE [Suspect]
     Indication: GLAUCOMA
     Dosage: 1 DROP; TWICE A DAY; OPHTHALMIC
     Route: 047
     Dates: start: 20040301
  2. TRAVATAN [Concomitant]

REACTIONS (13)
  - CONCUSSION [None]
  - CONFUSIONAL STATE [None]
  - CONTUSION [None]
  - DIZZINESS [None]
  - EAR HAEMORRHAGE [None]
  - FALL [None]
  - INTRAOCULAR PRESSURE INCREASED [None]
  - LOSS OF CONSCIOUSNESS [None]
  - LUMBAR VERTEBRAL FRACTURE [None]
  - SPINAL DISORDER [None]
  - SYNCOPE [None]
  - TOOTH DISORDER [None]
  - VISUAL ACUITY REDUCED [None]
